FAERS Safety Report 5034454-7 (Version None)
Quarter: 2006Q2

REPORT INFORMATION
  Report Type: 
  Country: None (occurrence: None)
  Receive Date: 20060626
  Receipt Date: 20060614
  Transmission Date: 20061013
  Serious: Yes (Hospitalization)
  Sender: FDA-Public Use
  Company Number: FI-BRISTOL-MYERS SQUIBB COMPANY-13415674

PATIENT

DRUGS (4)
  1. ABILIFY [Suspect]
     Indication: SCHIZOPHRENIA
     Route: 048
     Dates: start: 20060509, end: 20060531
  2. PROPRAL [Concomitant]
     Route: 048
     Dates: start: 20020101
  3. FROIDIR [Concomitant]
     Indication: SCHIZOPHRENIA
     Route: 048
     Dates: start: 20020111, end: 20060601
  4. RISPERIDONE [Concomitant]
     Indication: SCHIZOPHRENIA

REACTIONS (1)
  - GRANULOCYTOPENIA [None]
